FAERS Safety Report 13738250 (Version 4)
Quarter: 2017Q3

REPORT INFORMATION
  Report Type: Spontaneous
  Country: IT (occurrence: IT)
  Receive Date: 20170710
  Receipt Date: 20170731
  Transmission Date: 20171127
  Serious: Yes (Hospitalization)
  Sender: FDA-Public Use
  Company Number: IT-TEVA-784361ACC

PATIENT
  Age: 89 Year
  Sex: Female
  Weight: 45 kg

DRUGS (7)
  1. COUMADIN [Concomitant]
     Active Substance: WARFARIN SODIUM
     Indication: ATRIAL FIBRILLATION
     Dosage: 5 MG
     Route: 048
  2. LANOXIN [Interacting]
     Active Substance: DIGOXIN
     Indication: ATRIAL FIBRILLATION
     Dosage: 125 MICROGRAM DAILY;
     Route: 048
     Dates: end: 20170610
  3. ESIDREX [Interacting]
     Active Substance: HYDROCHLOROTHIAZIDE
     Indication: DIURETIC THERAPY
     Dosage: 25 MILLIGRAM DAILY;
     Route: 048
     Dates: end: 20170610
  4. SPIRIVA - 18 MCG CAPSULE [Concomitant]
     Indication: BRONCHOPNEUMOPATHY
     Dosage: 18 UG
     Route: 055
  5. NEO-LOTAN PLUS - 50 MG + 12,5 MG COMPRESSE RIVESTITE CON FILM [Interacting]
     Active Substance: HYDROCHLOROTHIAZIDE\LOSARTAN POTASSIUM
     Indication: HYPERTENSIVE HEART DISEASE
     Dosage: 62.5 MILLIGRAM DAILY;
     Route: 048
     Dates: end: 20170610
  6. NEO-LOTAN - 50 MG COMPRESSE RIVESTITE CON FILM [Concomitant]
     Indication: HYPERTENSION
     Dosage: 50 MG
     Route: 048
  7. DILTIAZEM HYDROCHLORIDE. [Suspect]
     Active Substance: DILTIAZEM HYDROCHLORIDE
     Indication: ATRIAL FIBRILLATION
     Dosage: 120 MILLIGRAM DAILY;
     Route: 048
     Dates: end: 20170610

REACTIONS (7)
  - Bradycardia [Recovered/Resolved]
  - Hyponatraemic syndrome [Recovered/Resolved]
  - Atrial fibrillation [Recovered/Resolved]
  - Vertigo [Unknown]
  - Drug interaction [Recovered/Resolved]
  - Asthenia [Recovered/Resolved]
  - Dizziness [Recovered/Resolved]

NARRATIVE: CASE EVENT DATE: 20170610
